FAERS Safety Report 24627564 (Version 1)
Quarter: 2024Q4

REPORT INFORMATION
  Report Type: Report from Study
  Country: US (occurrence: US)
  Receive Date: 20241116
  Receipt Date: 20241116
  Transmission Date: 20250115
  Serious: Yes (Other)
  Sender: AUROBINDO
  Company Number: US-AUROBINDO-AUR-APL-2024-055258

PATIENT
  Age: 69 Year
  Sex: Female

DRUGS (9)
  1. CAPECITABINE [Suspect]
     Active Substance: CAPECITABINE
     Indication: Squamous cell carcinoma
     Dosage: 1000 MG/M2 TWICE DAILY ON DAYS 1-14
     Route: 065
  2. DOCETAXEL [Suspect]
     Active Substance: DOCETAXEL
     Indication: Squamous cell carcinoma
     Dosage: 67.5 MG/M2 ON DAY 1
     Route: 065
  3. FLUOROURACIL [Suspect]
     Active Substance: FLUOROURACIL
     Indication: Squamous cell carcinoma
     Dosage: 675MG/M ON DAY -5
     Route: 065
  4. CISPLATIN [Suspect]
     Active Substance: CISPLATIN
     Indication: Squamous cell carcinoma
     Dosage: 67.5MG/M2 ON DAY 1
     Route: 065
  5. CISPLATIN [Suspect]
     Active Substance: CISPLATIN
     Dosage: 45 MG/M2 WEEKLY
     Route: 065
  6. PEMBROLIZUMAB [Suspect]
     Active Substance: PEMBROLIZUMAB
     Indication: Squamous cell carcinoma
     Dosage: 200MG EVERY 3 WEEKS
     Route: 065
  7. ALPELISIB [Suspect]
     Active Substance: ALPELISIB
     Indication: Hyperglycaemia
     Dosage: 300MG ONCE DAILY
     Route: 065
  8. CETUXIMAB [Suspect]
     Active Substance: CETUXIMAB
     Indication: Squamous cell carcinoma
     Dosage: 400MG/M2 LOADING DOSE FOLLOWED BY 250MG/M2 WEEKLY
     Route: 065
  9. PACLITAXEL [Suspect]
     Active Substance: PACLITAXEL
     Indication: Squamous cell carcinoma
     Dosage: 80MG/M2 ONCE WEEKLY FOR 3WEEKS
     Route: 065

REACTIONS (1)
  - Drug ineffective [Unknown]
